FAERS Safety Report 4999597-2 (Version None)
Quarter: 2006Q2

REPORT INFORMATION
  Report Type: 
  Country: None (occurrence: None)
  Receive Date: 20060511
  Receipt Date: 20050712
  Transmission Date: 20061013
  Serious: Yes (Other)
  Sender: FDA-Public Use
  Company Number: PHEH2005US07759

PATIENT
  Age: 77 Year

DRUGS (17)
  1. ZOMETA [Suspect]
     Indication: BREAST CANCER
     Dosage: 4MG Q4WK
     Dates: start: 20030801, end: 20041201
  2. DOCUSATE SODIUM [Concomitant]
     Indication: CONSTIPATION
     Dosage: 100 MG QD
     Dates: start: 20010801
  3. HYDROCODONE [Concomitant]
     Indication: PAIN
     Dosage: 5/500 MG Q4H PRN
     Dates: start: 20010801
  4. ACETAMINOPHEN [Concomitant]
  5. COMPAZINE [Concomitant]
     Dosage: 10MG Q4HPRN
     Dates: start: 20010801, end: 20040601
  6. NITROQUICK [Concomitant]
     Dosage: 0.4MG PRN
     Dates: start: 20010801
  7. ZANTAC [Concomitant]
     Indication: DYSPEPSIA
     Dosage: 150MG BID
     Dates: start: 20010801
  8. CELEBREX [Concomitant]
     Indication: PAIN
     Dosage: 200MG QD
     Dates: start: 20010801, end: 20040601
  9. MEGACE [Concomitant]
     Dosage: 10MG BID
     Dates: start: 20010801
  10. PROCRIT                            /00909301/ [Concomitant]
     Dates: end: 20060328
  11. ARIMIDEX [Concomitant]
     Indication: BREAST CANCER
     Dosage: 1MG QD
     Dates: start: 20010801
  12. TAMOXIFEN CITRATE [Concomitant]
  13. ALBUTEROL SULFATE AUTOHALER [Concomitant]
     Indication: ASTHMA
     Dosage: 2 PUFFS BID
     Dates: start: 20010801
  14. NIFEDIPINE [Concomitant]
     Indication: ANGINA PECTORIS
     Dosage: 60MG QD
     Dates: start: 20010801
  15. FLOVENT [Concomitant]
     Indication: ASTHMA
     Dosage: 2 PUFFS BID
     Dates: start: 20010801
  16. LASIX [Concomitant]
     Dosage: 40MG QD
  17. ISOSORBIDE DINITRATE [Concomitant]
     Indication: ANGINA PECTORIS
     Dosage: 40MG TID
     Dates: start: 20010801

REACTIONS (9)
  - ABSCESS NECK [None]
  - GINGIVAL SWELLING [None]
  - GINGIVITIS [None]
  - INCISIONAL DRAINAGE [None]
  - OSTEONECROSIS [None]
  - PAIN [None]
  - PATHOLOGICAL FRACTURE [None]
  - SOFT TISSUE INFECTION [None]
  - STAPHYLOCOCCAL INFECTION [None]
